FAERS Safety Report 7685694-X (Version None)
Quarter: 2011Q3

REPORT INFORMATION
  Report Type: 
  Country: None (occurrence: None)
  Receive Date: 20110816
  Receipt Date: 20110809
  Transmission Date: 20111222
  Serious: Yes (Hospitalization)
  Sender: FDA-Public Use
  Company Number: FR-ROCHE-770185

PATIENT
  Sex: Female

DRUGS (3)
  1. ACTEMRA [Suspect]
     Indication: ANKYLOSING SPONDYLITIS
     Dosage: FREQUENCY: CYCLE
     Route: 042
     Dates: start: 20101230
  2. ACTEMRA [Suspect]
     Dosage: THIRD INFUSION
     Route: 042
     Dates: start: 20110225, end: 20110225
  3. ACTEMRA [Suspect]
     Dosage: SECOND INFUSION OF TOCILIZUMAB.
     Route: 042
     Dates: start: 20110128

REACTIONS (3)
  - MOUTH ULCERATION [None]
  - DIARRHOEA [None]
  - ABDOMINAL PAIN [None]
